FAERS Safety Report 12561068 (Version 1)
Quarter: 2016Q3

REPORT INFORMATION
  Report Type: Spontaneous
  Country: FR (occurrence: FR)
  Receive Date: 20160715
  Receipt Date: 20160715
  Transmission Date: 20161109
  Serious: Yes (Other)
  Sender: FDA-Public Use
  Company Number: FR-009507513-1607FRA005730

PATIENT
  Age: 66 Year
  Sex: Female

DRUGS (5)
  1. EMEND [Suspect]
     Active Substance: APREPITANT
     Indication: PROPHYLAXIS OF NAUSEA AND VOMITING
     Dosage: 125 MG AT 1 DAY, THEN 80 MG AT THE 2 AND 3 DAY, CYCLICAL
     Route: 048
     Dates: start: 20160317, end: 20160601
  2. CARDIOXANE [Suspect]
     Active Substance: DEXRAZOXANE HYDROCHLORIDE
     Indication: CHEMOTHERAPY CARDIOTOXICITY ATTENUATION
     Dosage: 1500 MG PER CYCLE, EVERY THREE WEEKS
     Route: 042
     Dates: start: 20160317, end: 20160428
  3. CYCLOPHOSPHAMIDE. [Suspect]
     Active Substance: CYCLOPHOSPHAMIDE
     Indication: BREAST CANCER
     Dosage: 1485 MG PER CYCLE, EVERY THREE WEEKS
     Route: 042
     Dates: start: 20160317, end: 20160428
  4. SOLUPRED [Concomitant]
     Active Substance: PREDNISOLONE
     Dosage: 100 TO 120 MG FROM DAY 1 TO DAY 4, CYCLICAL
     Dates: start: 20160317, end: 20160602
  5. EPIRUBICIN [Suspect]
     Active Substance: EPIRUBICIN
     Indication: BREAST CANCER
     Dosage: 149 MG PER CYCLE, EVERY 3 WEEKS
     Route: 042
     Dates: start: 20160317, end: 20160428

REACTIONS (1)
  - Hepatitis [Not Recovered/Not Resolved]

NARRATIVE: CASE EVENT DATE: 20160518
